FAERS Safety Report 14514975 (Version 2)
Quarter: 2018Q1

REPORT INFORMATION
  Report Type: Report from Study
  Country: None (occurrence: ES)
  Receive Date: 20180209
  Receipt Date: 20180220
  Transmission Date: 20180509
  Serious: Yes (Death, Life-Threatening)
  Sender: FDA-Public Use
  Company Number: ES-ABBVIE-18K-144-2211570-00

PATIENT
  Age: 79 Year
  Sex: Male

DRUGS (3)
  1. AMANTADINE. [Suspect]
     Active Substance: AMANTADINE HYDROCHLORIDE
     Indication: PRODUCT USED FOR UNKNOWN INDICATION
     Route: 065
     Dates: start: 2017
  2. DUODOPA [Suspect]
     Active Substance: CARBIDOPA\LEVODOPA
     Indication: PARKINSON^S DISEASE
     Route: 050
     Dates: start: 20090313
  3. DUODOPA [Suspect]
     Active Substance: CARBIDOPA\LEVODOPA
     Dosage: MORNING DOSE WAS DECREASED FORM 13 TO 11.5ML
     Route: 050

REACTIONS (10)
  - Vomiting [Not Recovered/Not Resolved]
  - Dizziness [Unknown]
  - Gastroenteritis [Recovering/Resolving]
  - Decreased appetite [Unknown]
  - Nausea [Not Recovered/Not Resolved]
  - Anaemia [Fatal]
  - Kidney infection [Fatal]
  - Dyskinesia [Not Recovered/Not Resolved]
  - Renal failure [Fatal]
  - Weight decreased [Not Recovered/Not Resolved]

NARRATIVE: CASE EVENT DATE: 201712
